FAERS Safety Report 19228558 (Version 2)
Quarter: 2021Q2

REPORT INFORMATION
  Report Type: Spontaneous
  Country: HU (occurrence: HU)
  Receive Date: 20210506
  Receipt Date: 20210520
  Transmission Date: 20210717
  Serious: Yes (Other)
  Sender: FDA-Public Use
  Company Number: NVSC2021HU095147

PATIENT
  Age: 54 Year
  Sex: Male

DRUGS (3)
  1. TASIGNA [Suspect]
     Active Substance: NILOTINIB
     Indication: CHRONIC MYELOID LEUKAEMIA
     Dosage: 300 MG, BID (2X/DAY)
     Route: 065
     Dates: start: 20180912
  2. HYDROXYUREA. [Concomitant]
     Active Substance: HYDROXYUREA
     Indication: PRODUCT USED FOR UNKNOWN INDICATION
     Route: 065
  3. HEPARIN [Concomitant]
     Active Substance: HEPARIN SODIUM
     Indication: PRODUCT USED FOR UNKNOWN INDICATION
     Dosage: UNK (LOW?MOLECULAR WEIGHT HEPARIN)
     Route: 065

REACTIONS (6)
  - Intracranial aneurysm [Not Recovered/Not Resolved]
  - Ankle fracture [Unknown]
  - Product dose omission issue [Unknown]
  - Polymerase chain reaction positive [Unknown]
  - White blood cell count increased [Recovered/Resolved]
  - Philadelphia chromosome positive [Unknown]

NARRATIVE: CASE EVENT DATE: 20180912
